FAERS Safety Report 5890872-6 (Version None)
Quarter: 2008Q3

REPORT INFORMATION
  Report Type: 
  Country: None (occurrence: None)
  Receive Date: 20080917
  Receipt Date: 20080917
  Transmission Date: 20090109
  Serious: Yes (Other)
  Sender: FDA-Public Use
  Company Number: None

PATIENT
  Sex: Male
  Weight: 78.63 kg

DRUGS (1)
  1. RISPERIDONE [Suspect]
     Dosage: 2MG PRN

REACTIONS (3)
  - DYSTONIA [None]
  - HALLUCINATION, AUDITORY [None]
  - MUSCULOSKELETAL STIFFNESS [None]
